FAERS Safety Report 8097549-X (Version None)
Quarter: 2012Q1

REPORT INFORMATION
  Report Type: 
  Country: None (occurrence: None)
  Receive Date: 20120131
  Receipt Date: 20120123
  Transmission Date: 20120608
  Serious: Yes (Other)
  Sender: FDA-Public Use
  Company Number: US-TEVA-318434USA

PATIENT
  Sex: Female

DRUGS (3)
  1. CLARAVIS [Suspect]
     Dosage: 30-60 MG DAILY
     Dates: start: 20120101, end: 20120101
  2. MULTI-VITAMINS [Concomitant]
  3. CLARAVIS [Suspect]
     Indication: ACNE
     Dosage: 30-60 MG DAILY
     Dates: start: 20110524, end: 20111219

REACTIONS (1)
  - UNINTENDED PREGNANCY [None]
